FAERS Safety Report 7599088-9 (Version None)
Quarter: 2011Q3

REPORT INFORMATION
  Report Type: 
  Country: None (occurrence: None)
  Receive Date: 20110711
  Receipt Date: 20110623
  Transmission Date: 20111222
  Serious: Yes (Other)
  Sender: FDA-Public Use
  Company Number: US-BAYER-2011-036342

PATIENT
  Sex: Male

DRUGS (5)
  1. SPIRONOLACTONE [Concomitant]
  2. FUROSEMIDE [Concomitant]
  3. LISINOPRIL [Concomitant]
  4. TRASYLOL [Suspect]
     Indication: CORONARY ARTERY BYPASS
     Dosage: UNK
     Route: 042
     Dates: start: 20070417
  5. INDOMETHACIN [Concomitant]

REACTIONS (11)
  - CEREBROVASCULAR ACCIDENT [None]
  - RENAL IMPAIRMENT [None]
  - ACUTE MYOCARDIAL INFARCTION [None]
  - MULTI-ORGAN FAILURE [None]
  - RENAL FAILURE [None]
  - STRESS [None]
  - ANXIETY [None]
  - FEAR [None]
  - PAIN [None]
  - RENAL INJURY [None]
  - EMOTIONAL DISTRESS [None]
